FAERS Safety Report 6437234-0 (Version None)
Quarter: 2009Q4

REPORT INFORMATION
  Report Type: 
  Country: None (occurrence: None)
  Receive Date: 20091112
  Receipt Date: 20091106
  Transmission Date: 20100525
  Serious: Yes (Death, Other)
  Sender: FDA-Public Use
  Company Number: CH-BAYER-200933014GPV

PATIENT
  Age: 22 Year
  Sex: Female
  Weight: 47 kg

DRUGS (1)
  1. YAZ [Suspect]
     Indication: CONTRACEPTION
     Route: 048
     Dates: start: 20081119

REACTIONS (9)
  - ANGINA PECTORIS [None]
  - BREAST PAIN [None]
  - CIRCULATORY COLLAPSE [None]
  - LUNG DISORDER [None]
  - NASOPHARYNGITIS [None]
  - PALPITATIONS [None]
  - PULMONARY EMBOLISM [None]
  - PULMONARY INFARCTION [None]
  - TACHYCARDIA [None]
